FAERS Safety Report 21036363 (Version 1)
Quarter: 2022Q3

REPORT INFORMATION
  Report Type: Spontaneous
  Country: IT (occurrence: IT)
  Receive Date: 20220702
  Receipt Date: 20220702
  Transmission Date: 20221026
  Serious: Yes (Death, Hospitalization, Other)
  Sender: FDA-Public Use
  Company Number: IT-MACLEODS PHARMACEUTICALS US LTD-MAC2022036238

PATIENT

DRUGS (4)
  1. LEVOFLOXACIN [Suspect]
     Active Substance: LEVOFLOXACIN
     Indication: Antibiotic therapy
     Dosage: 750 MILLIGRAM, QD (START DATE:2020 AND STOP DATE:2020)
     Route: 065
  2. PIPERACILLIN SODIUM\TAZOBACTAM SODIUM [Suspect]
     Active Substance: PIPERACILLIN SODIUM\TAZOBACTAM SODIUM
     Indication: Antibiotic therapy
     Dosage: 1 DOSAGE FORM, TID (START DATE: 2020) 4G/500MG
     Route: 065
  3. DOXORUBICIN [Suspect]
     Active Substance: DOXORUBICIN
     Indication: Chemotherapy
     Dosage: 75 MILLIGRAM/SQ. METER
     Route: 065
  4. ACETAMINOPHEN\CODEINE PHOSPHATE [Concomitant]
     Active Substance: ACETAMINOPHEN\CODEINE PHOSPHATE
     Indication: Back pain
     Dosage: 1 DOSAGE FORM, PRN; USUALLY ONCE A DAY (START DATE 2020)
     Route: 065

REACTIONS (3)
  - Death [Fatal]
  - Pneumothorax [Recovered/Resolved]
  - Pleural effusion [Recovered/Resolved]
